FAERS Safety Report 6582119-2 (Version None)
Quarter: 2010Q1

REPORT INFORMATION
  Report Type: 
  Country: None (occurrence: None)
  Receive Date: 20100212
  Receipt Date: 20100212
  Transmission Date: 20100710
  Serious: Yes (Hospitalization)
  Sender: FDA-Public Use
  Company Number: None

PATIENT
  Sex: Male

DRUGS (10)
  1. SORAFENIB [Suspect]
     Indication: PROSTATE CANCER
     Dosage: 200 MG BID PO ON HOLD
     Route: 048
     Dates: start: 20090817, end: 20100111
  2. K-DUR [Concomitant]
  3. PREDNISONE [Concomitant]
  4. PROCHLORPERAZINE MALEATE [Concomitant]
  5. ZOMETA [Concomitant]
  6. MEGACE [Concomitant]
  7. PEGFILGRASTIM [Concomitant]
  8. NIFEDICAL [Concomitant]
  9. TYLENOL-500 [Concomitant]
  10. LUPRON [Concomitant]

REACTIONS (3)
  - DIVERTICULUM [None]
  - DYSPNOEA [None]
  - GASTROINTESTINAL HAEMORRHAGE [None]
